FAERS Safety Report 18871612 (Version 1)
Quarter: 2021Q1

REPORT INFORMATION
  Report Type: Spontaneous
  Country: US (occurrence: US)
  Receive Date: 20210210
  Receipt Date: 20210210
  Transmission Date: 20210420
  Serious: No
  Sender: FDA-Public Use
  Company Number: US-ALLERGAN-2030505US

PATIENT
  Sex: Female

DRUGS (2)
  1. TAZORAC [Suspect]
     Active Substance: TAZAROTENE
     Indication: SKIN ATROPHY
  2. TAZORAC [Suspect]
     Active Substance: TAZAROTENE
     Indication: ACNE
     Dosage: UNK, QD
     Route: 061

REACTIONS (2)
  - Off label use [Unknown]
  - Application site exfoliation [Not Recovered/Not Resolved]
